FAERS Safety Report 5724005-3 (Version None)
Quarter: 2008Q2

REPORT INFORMATION
  Report Type: 
  Country: None (occurrence: None)
  Receive Date: 20080430
  Receipt Date: 20080429
  Transmission Date: 20081010
  Serious: Yes (Hospitalization)
  Sender: FDA-Public Use
  Company Number: JP-WYE-H03030008

PATIENT
  Age: 31 Year
  Sex: Female

DRUGS (1)
  1. OSTELUC [Suspect]
     Indication: TENOSYNOVITIS
     Route: 048
     Dates: start: 20080304, end: 20080306

REACTIONS (1)
  - STEVENS-JOHNSON SYNDROME [None]
